FAERS Safety Report 5126682-7 (Version None)
Quarter: 2006Q4

REPORT INFORMATION
  Report Type: 
  Country: None (occurrence: None)
  Receive Date: 20061012
  Receipt Date: 20061012
  Transmission Date: 20070319
  Serious: Yes (Life-Threatening, Hospitalization)
  Sender: FDA-Public Use
  Company Number: None

PATIENT
  Age: 71 Year
  Sex: Male
  Weight: 91 kg

DRUGS (1)
  1. ZYVOX [Suspect]
     Indication: EMPYEMA
     Dosage: 600MG  IV  Q12H
     Route: 042
     Dates: start: 20060906, end: 20060924

REACTIONS (1)
  - THROMBOCYTOPENIA [None]
